FAERS Safety Report 18338080 (Version 2)
Quarter: 2022Q4

REPORT INFORMATION
  Report Type: Spontaneous
  Country: US (occurrence: US)
  Receive Date: 20201002
  Receipt Date: 20221223
  Transmission Date: 20230113
  Serious: Yes (Other)
  Sender: FDA-Public Use
  Company Number: US-SA-2020SA266062

PATIENT
  Age: 60 Year
  Sex: Female

DRUGS (2)
  1. DUPIXENT [Suspect]
     Active Substance: DUPILUMAB
     Indication: Dermatitis
     Dosage: 600 MG, 1X (LOADING DOSE)
     Route: 058
  2. DUPIXENT [Suspect]
     Active Substance: DUPILUMAB
     Indication: Cutaneous T-cell lymphoma
     Dosage: 300 MG, QOW
     Route: 058

REACTIONS (4)
  - Cutaneous T-cell lymphoma [Unknown]
  - Disease progression [Unknown]
  - Unintentional use for unapproved indication [Unknown]
  - Unmasking of previously unidentified disease [Unknown]
